FAERS Safety Report 19118985 (Version 2)
Quarter: 2021Q2

REPORT INFORMATION
  Report Type: Spontaneous
  Country: US (occurrence: US)
  Receive Date: 20210411
  Receipt Date: 20210504
  Transmission Date: 20210717
  Serious: No
  Sender: FDA-Public Use
  Company Number: US-ORGANON-O2103USA002739

PATIENT
  Age: 70 Year
  Sex: Male

DRUGS (3)
  1. DULERA [Suspect]
     Active Substance: FORMOTEROL FUMARATE DIHYDRATE\MOMETASONE FUROATE
     Dosage: 2 PUFFS, ONCE DAILY
     Dates: start: 2019
  2. DULERA [Suspect]
     Active Substance: FORMOTEROL FUMARATE DIHYDRATE\MOMETASONE FUROATE
     Dosage: 2 PUFFS ONCE DAILY
     Dates: start: 20201113
  3. DULERA [Suspect]
     Active Substance: FORMOTEROL FUMARATE DIHYDRATE\MOMETASONE FUROATE
     Dosage: 2 PUFFS ONCE DAILY
     Dates: start: 20201230

REACTIONS (9)
  - Device malfunction [Unknown]
  - Incorrect dose administered [Unknown]
  - Device malfunction [Unknown]
  - Poor quality device used [Unknown]
  - Wrong technique in product usage process [Unknown]
  - Poor quality device used [Unknown]
  - Poor quality device used [Unknown]
  - Device malfunction [Unknown]
  - No adverse event [Unknown]

NARRATIVE: CASE EVENT DATE: 2019
